FAERS Safety Report 7418609-X (Version None)
Quarter: 2011Q2

REPORT INFORMATION
  Report Type: 
  Country: None (occurrence: None)
  Receive Date: 20110415
  Receipt Date: 20101025
  Transmission Date: 20111010
  Serious: Yes (Hospitalization, Other)
  Sender: FDA-Public Use
  Company Number: US-BAYER-201034838NA

PATIENT
  Age: 39 Year
  Sex: Female
  Weight: 88 kg

DRUGS (9)
  1. NISPAN [Concomitant]
     Indication: BLOOD CHOLESTEROL INCREASED
     Dosage: UNK
     Dates: start: 20000101
  2. HCTC [Concomitant]
     Indication: OEDEMA PERIPHERAL
     Dosage: UNK
     Dates: start: 20000101
  3. IRON [Concomitant]
     Indication: ANAEMIA
     Dosage: UNK
     Dates: start: 20000101
  4. YASMIN [Suspect]
     Indication: CONTRACEPTION
     Dosage: UNK
     Dates: start: 20000101, end: 20100101
  5. TRAMADOL [Concomitant]
     Indication: PAIN
     Dosage: UNK
     Dates: start: 20010101
  6. ZETIA [Concomitant]
     Indication: BLOOD CHOLESTEROL INCREASED
     Dosage: UNK
     Dates: start: 20000101
  7. POTASSIUM [POTASSIUM] [Concomitant]
     Indication: BLOOD POTASSIUM DECREASED
     Dosage: UNK
     Dates: start: 20000101
  8. YAZ [Suspect]
     Indication: CONTRACEPTION
     Dosage: UNK
     Dates: start: 20000101, end: 20100101
  9. ZOLOFT [Concomitant]
     Indication: DEPRESSION

REACTIONS (2)
  - CHOLECYSTITIS CHRONIC [None]
  - CHOLECYSTECTOMY [None]
